FAERS Safety Report 7998430-4 (Version None)
Quarter: 2011Q4

REPORT INFORMATION
  Report Type: 
  Country: None (occurrence: None)
  Receive Date: 20111221
  Receipt Date: 20111018
  Transmission Date: 20120403
  Serious: No
  Sender: FDA-Public Use
  Company Number: US-GLAXOSMITHKLINE-A0949541A

PATIENT
  Sex: Female

DRUGS (2)
  1. RECLAST [Concomitant]
  2. LOVAZA [Suspect]
     Indication: BLOOD CHOLESTEROL INCREASED
     Dosage: 2MG PER DAY
     Route: 048
     Dates: start: 20090101

REACTIONS (1)
  - OSTEOPOROSIS [None]
